FAERS Safety Report 7527797-6 (Version None)
Quarter: 2011Q2

REPORT INFORMATION
  Report Type: 
  Country: None (occurrence: None)
  Receive Date: 20110607
  Receipt Date: 20110602
  Transmission Date: 20111010
  Serious: Yes (Hospitalization, Other)
  Sender: FDA-Public Use
  Company Number: GB-PFIZER INC-2011120504

PATIENT
  Age: 85 Year
  Sex: Male

DRUGS (12)
  1. QUETIAPINE [Suspect]
     Indication: ANXIETY
     Dosage: 25 MG, 1X/DAY
     Route: 048
     Dates: end: 20110512
  2. DIPYRIDAMOLE [Concomitant]
  3. SALAMOL [Concomitant]
  4. SENNA [Concomitant]
  5. TEMAZEPAM [Concomitant]
  6. ASPIRIN [Concomitant]
  7. DICLOFENAC DIETHYLAMINE [Concomitant]
  8. FINASTERIDE [Concomitant]
  9. LANSOPRAZOLE [Concomitant]
  10. PARACETAMOL [Concomitant]
  11. TAMSULOSIN [Concomitant]
  12. VENLAFAXINE HCL [Suspect]
     Indication: ANXIETY
     Dosage: 75 MG, 1X/DAY
     Route: 048
     Dates: end: 20110512

REACTIONS (4)
  - HYPERHIDROSIS [None]
  - COLD SWEAT [None]
  - ELECTROCARDIOGRAM QT PROLONGED [None]
  - VENTRICULAR EXTRASYSTOLES [None]
